FAERS Safety Report 4462346-0 (Version None)
Quarter: 2004Q3

REPORT INFORMATION
  Report Type: 
  Country: None (occurrence: None)
  Receive Date: 20040929
  Receipt Date: 20040904
  Transmission Date: 20050211
  Serious: Yes (Other)
  Sender: FDA-Public Use
  Company Number: PHNU2004DE03120

PATIENT
  Age: 64 Year
  Sex: Female
  Weight: 70 kg

DRUGS (3)
  1. SANDIMMUNE [Suspect]
     Indication: SCLERODERMA
     Dosage: 175 MG DAILY
     Route: 048
     Dates: start: 20040702, end: 20040711
  2. CORTISONE [Concomitant]
  3. ACE INHIBITOR NOS [Suspect]

REACTIONS (7)
  - BLOOD CREATININE INCREASED [None]
  - DIALYSIS [None]
  - HYPERTENSION [None]
  - NEPHROTIC SYNDROME [None]
  - RENAL FUNCTION TEST ABNORMAL [None]
  - THROMBOCYTOPENIA [None]
  - TREMOR [None]
